FAERS Safety Report 9655594 (Version 2)
Quarter: 2013Q4

REPORT INFORMATION
  Report Type: Report from Study
  Country: CA (occurrence: CA)
  Receive Date: 20131030
  Receipt Date: 20131107
  Transmission Date: 20140711
  Serious: Yes (Other)
  Sender: FDA-Public Use
  Company Number: CA-ABBVIE-13P-028-1162686-00

PATIENT
  Sex: Female
  Weight: 50.85 kg

DRUGS (3)
  1. HUMIRA [Suspect]
     Indication: CROHN^S DISEASE
     Route: 058
     Dates: start: 20121105
  2. HUMIRA [Suspect]
     Dates: end: 201304
  3. PURINETHOL [Concomitant]
     Indication: CROHN^S DISEASE
     Route: 048
     Dates: start: 201307

REACTIONS (1)
  - Small intestinal obstruction [Unknown]
